FAERS Safety Report 14261549 (Version 1)
Quarter: 2017Q4

REPORT INFORMATION
  Report Type: Spontaneous
  Country: IN (occurrence: IT)
  Receive Date: 20171208
  Receipt Date: 20171208
  Transmission Date: 20180321
  Serious: Yes (Hospitalization, Congenital Anomaly, Other)
  Sender: FDA-Public Use
  Company Number: IT-TEVA-2012-03323

PATIENT
  Age: 33 Week
  Sex: Female
  Weight: 1.97 kg

DRUGS (3)
  1. NIMESULIDE (UNKNOWN) [Suspect]
     Active Substance: NIMESULIDE
     Indication: PRODUCT USED FOR UNKNOWN INDICATION
     Dosage: 200 MILLIGRAM DAILY; 100-200 MG, DAILY 3 MONTHS BEFORE TO 1 MONTH AFTER CONCEPTION; 100MG/ DAY THE 4
     Route: 064
  2. DICLOFENAC (UNKNOWN) [Suspect]
     Active Substance: DICLOFENAC
     Indication: PRODUCT USED FOR UNKNOWN INDICATION
     Dosage: 75 MILLIGRAM DAILY; 75 MG, DAILY X 8 WKS, FROM THE 2ND TO THE 3RD MONTH DURING MOTHER^S PREGNANCY
     Route: 064
  3. PARACETAMOL (UNKNOWN) [Suspect]
     Active Substance: ACETAMINOPHEN
     Indication: PRODUCT USED FOR UNKNOWN INDICATION
     Dosage: 9 GRAM DAILY; 8-9 GRAMS/DAY FROM THE 2ND TO THE 3RD MONTH; 1-2 GRAMS/DAY FROM THE 4TH MONTH TO DELIV
     Route: 064

REACTIONS (8)
  - Renal failure neonatal [Recovered/Resolved]
  - Neonatal respiratory distress syndrome [Recovered/Resolved]
  - Premature baby [Unknown]
  - Bradycardia [Recovered/Resolved]
  - Ductus arteriosus stenosis foetal [Unknown]
  - Foetal exposure during pregnancy [Recovered/Resolved]
  - Cyanosis [Recovered/Resolved]
  - Respiratory acidosis [Unknown]
